FAERS Safety Report 7817652-6 (Version None)
Quarter: 2011Q4

REPORT INFORMATION
  Report Type: 
  Country: None (occurrence: None)
  Receive Date: 20111017
  Receipt Date: 20111010
  Transmission Date: 20120403
  Serious: Yes (Hospitalization)
  Sender: FDA-Public Use
  Company Number: IE-AMGEN-IRLSP2011047121

PATIENT
  Age: 80 Year
  Sex: Female

DRUGS (16)
  1. NASEPTIN [Concomitant]
  2. SINGULAIR [Concomitant]
  3. SPIRIVA [Concomitant]
  4. BONIVA [Concomitant]
  5. ZOCOR [Concomitant]
  6. ZOLPIDEM TARTRATE [Concomitant]
  7. CALCIUM CARBONATE [Concomitant]
  8. ISTIN [Concomitant]
  9. DIOVAN HCT [Concomitant]
  10. RANITIC [Concomitant]
  11. PLAVIX [Concomitant]
  12. ARANESP [Suspect]
     Indication: MYELODYSPLASTIC SYNDROME
     Dosage: 100 MUG, 6 TIMES/WK
     Route: 058
     Dates: start: 20080508
  13. LANOXIN [Concomitant]
  14. VENTOLIN [Concomitant]
  15. ARTELAC [Concomitant]
  16. FLUTICASONE PROPIONATE/SALMETEROL [Concomitant]

REACTIONS (1)
  - CHEST DISCOMFORT [None]
